FAERS Safety Report 16258141 (Version 2)
Quarter: 2019Q3

REPORT INFORMATION
  Report Type: Spontaneous
  Country: FR (occurrence: FR)
  Receive Date: 20190430
  Receipt Date: 20190701
  Transmission Date: 20191004
  Serious: Yes (Death, Life-Threatening)
  Sender: FDA-Public Use
  Company Number: FR-MYLANLABS-2019M1040758

PATIENT
  Age: 72 Year
  Sex: Male
  Weight: 58 kg

DRUGS (3)
  1. DEPAKINE                           /00228502/ [Concomitant]
     Active Substance: VALPROATE SODIUM
     Indication: EPILEPSY
     Dosage: 500 MILLIGRAM, QD
  2. METHOTREXATE MYLAN [Suspect]
     Active Substance: METHOTREXATE SODIUM
     Indication: CENTRAL NERVOUS SYSTEM LYMPHOMA
     Dosage: 5 GRAM, TOTAL
     Route: 042
     Dates: start: 20181026, end: 20181026
  3. MODOPAR [Concomitant]
     Active Substance: BENSERAZIDE HYDROCHLORIDE\LEVODOPA
     Dosage: UNK

REACTIONS (2)
  - Coma [Fatal]
  - Epilepsy [Recovered/Resolved]

NARRATIVE: CASE EVENT DATE: 20181031
